FAERS Safety Report 5360939-X (Version None)
Quarter: 2007Q2

REPORT INFORMATION
  Report Type: 
  Country: None (occurrence: None)
  Receive Date: 20070618
  Receipt Date: 20070607
  Transmission Date: 20071010
  Serious: Yes (Hospitalization)
  Sender: FDA-Public Use
  Company Number: GB-PFIZER INC-2007047267

PATIENT
  Sex: Female
  Weight: 76.2 kg

DRUGS (16)
  1. PREGABALIN [Suspect]
     Indication: NEURALGIA
     Route: 048
     Dates: start: 20060819, end: 20060929
  2. ACETYLCYSTEINE [Concomitant]
  3. AMITRIPTYLINE HCL [Concomitant]
  4. ATROVENT [Concomitant]
  5. BISACODYL [Concomitant]
  6. CALCICHEW [Concomitant]
  7. CO-AMILOFRUSE [Concomitant]
  8. COLOMYCIN [Concomitant]
  9. FLUTICASONE PROPIONATE [Concomitant]
  10. FUROSEMIDE [Concomitant]
  11. LEVOTHYROXINE SODIUM [Concomitant]
  12. LOSARTAN [Concomitant]
  13. PREDNISOLONE [Concomitant]
  14. QUININE SULFATE [Concomitant]
  15. RALOXIFENE HCL [Concomitant]
  16. SALBUTAMOL [Concomitant]

REACTIONS (6)
  - AGITATION [None]
  - CONFUSIONAL STATE [None]
  - HALLUCINATION [None]
  - LETHARGY [None]
  - NIGHTMARE [None]
  - RENAL FAILURE ACUTE [None]
